FAERS Safety Report 6649027-X (Version None)
Quarter: 2010Q1

REPORT INFORMATION
  Report Type: 
  Country: None (occurrence: None)
  Receive Date: 20100324
  Receipt Date: 20100315
  Transmission Date: 20100710
  Serious: Yes (Hospitalization, Other)
  Sender: FDA-Public Use
  Company Number: US-SANOFI-AVENTIS-2010SA016380

PATIENT
  Sex: Female

DRUGS (4)
  1. OPTICLICK [Suspect]
     Indication: TYPE 1 DIABETES MELLITUS
  2. OPTICLICK [Suspect]
  3. LANTUS [Suspect]
     Indication: TYPE 1 DIABETES MELLITUS
     Dosage: DOSE:44 UNIT(S)
     Route: 058
  4. APIDRA [Suspect]
     Indication: TYPE 1 DIABETES MELLITUS
     Dosage: 10 TO 13 UNITS 3 TO 4 TIMES A DAY
     Route: 058

REACTIONS (16)
  - ABDOMINAL DISCOMFORT [None]
  - BLISTER [None]
  - BURNING SENSATION [None]
  - COMA [None]
  - CYSTITIS [None]
  - DELUSION [None]
  - DIALYSIS [None]
  - DIZZINESS [None]
  - EXPIRED DRUG ADMINISTERED [None]
  - IMMUNE SYSTEM DISORDER [None]
  - INFLUENZA LIKE ILLNESS [None]
  - INJECTION SITE PAIN [None]
  - MYOCARDIAL INFARCTION [None]
  - PRODUCT QUALITY ISSUE [None]
  - PRURITUS [None]
  - SEPSIS [None]
